FAERS Safety Report 6767648-0 (Version None)
Quarter: 2010Q2

REPORT INFORMATION
  Report Type: 
  Country: None (occurrence: None)
  Receive Date: 20100608
  Receipt Date: 20100608
  Transmission Date: 20101027
  Serious: Yes (Life-Threatening, Hospitalization)
  Sender: FDA-Public Use
  Company Number: None

PATIENT
  Sex: Female
  Weight: 57.1532 kg

DRUGS (2)
  1. AZITHROMYCIN [Suspect]
     Indication: LYMPHADENOPATHY
     Dosage: 6 PILLS DAILY 2 FIRST DAY, 1 DAILY
     Dates: start: 20100222, end: 20100226
  2. AZITHROMYCIN [Suspect]
     Indication: OROPHARYNGEAL PAIN
     Dosage: 6 PILLS DAILY 2 FIRST DAY, 1 DAILY
     Dates: start: 20100222, end: 20100226

REACTIONS (1)
  - STEVENS-JOHNSON SYNDROME [None]
